FAERS Safety Report 14536260 (Version 1)
Quarter: 2018Q1

REPORT INFORMATION
  Report Type: Spontaneous
  Country: FI (occurrence: FI)
  Receive Date: 20180215
  Receipt Date: 20180215
  Transmission Date: 20180509
  Serious: Yes (Hospitalization, Other)
  Sender: FDA-Public Use
  Company Number: FI-BRISTOL-MYERS SQUIBB COMPANY-BMS-2018-010143

PATIENT
  Age: 68 Year
  Sex: Female

DRUGS (3)
  1. ORENCIA [Suspect]
     Active Substance: ABATACEPT
     Indication: PRODUCT USED FOR UNKNOWN INDICATION
     Dosage: UNK
     Route: 065
  2. HUMIRA [Suspect]
     Active Substance: ADALIMUMAB
     Indication: PRODUCT USED FOR UNKNOWN INDICATION
     Route: 058
  3. ORENCIA [Suspect]
     Active Substance: ABATACEPT
     Indication: RHEUMATOID ARTHRITIS
     Dosage: UNK
     Route: 065

REACTIONS (18)
  - Osteoporosis [Unknown]
  - Tendon rupture [Unknown]
  - Pneumonia [Unknown]
  - Bone erosion [Unknown]
  - C-reactive protein increased [Unknown]
  - Lethargy [Unknown]
  - Immunoglobulins decreased [Unknown]
  - Immunodeficiency [Unknown]
  - Hypothyroidism [Unknown]
  - Hypertonia [Unknown]
  - Wound infection [Unknown]
  - Parkinson^s disease [Unknown]
  - Dizziness [Unknown]
  - Bone graft [Unknown]
  - Adrenal insufficiency [Unknown]
  - Neuroborreliosis [Unknown]
  - Drug ineffective [Unknown]
  - Infection [Unknown]

NARRATIVE: CASE EVENT DATE: 2010
